FAERS Safety Report 18427268 (Version 3)
Quarter: 2020Q4

REPORT INFORMATION
  Report Type: Spontaneous
  Country: GB (occurrence: GB)
  Receive Date: 20201026
  Receipt Date: 20201206
  Transmission Date: 20210114
  Serious: Yes (Other)
  Sender: FDA-Public Use
  Company Number: GB-JNJFOC-20201023252

PATIENT
  Age: 60 Year
  Sex: Male

DRUGS (3)
  1. ZYTIGA [Suspect]
     Active Substance: ABIRATERONE ACETATE
     Route: 048
  2. LEUPRORELIN [Suspect]
     Active Substance: LEUPROLIDE ACETATE
     Indication: PROSTATE CANCER METASTATIC
     Route: 065
  3. ZYTIGA [Suspect]
     Active Substance: ABIRATERONE ACETATE
     Indication: PROSTATE CANCER METASTATIC
     Route: 048
     Dates: start: 201707

REACTIONS (7)
  - Bone density decreased [Unknown]
  - Muscle atrophy [Unknown]
  - Weight increased [Unknown]
  - Aspartate aminotransferase increased [Recovered/Resolved]
  - Loss of libido [Unknown]
  - Fatigue [Unknown]
  - Erectile dysfunction [Unknown]
